FAERS Safety Report 12622837 (Version 2)
Quarter: 2016Q3

REPORT INFORMATION
  Report Type: Report from Study
  Country: DE (occurrence: DE)
  Receive Date: 20160804
  Receipt Date: 20160815
  Transmission Date: 20161109
  Serious: Yes (Death)
  Sender: FDA-Public Use
  Company Number: DE-PFIZER INC-2016371966

PATIENT
  Age: 77 Year
  Sex: Female
  Weight: 66 kg

DRUGS (2)
  1. INLYTA [Suspect]
     Active Substance: AXITINIB
     Indication: RENAL CELL CARCINOMA
     Dosage: 10 MG, DAILY
     Dates: start: 20160617
  2. KEVATRIL [Concomitant]
     Active Substance: GRANISETRON HYDROCHLORIDE
     Indication: ANTIEMETIC SUPPORTIVE CARE
     Dosage: UNK
     Route: 048
     Dates: start: 20160617, end: 20160623

REACTIONS (1)
  - Death [Fatal]

NARRATIVE: CASE EVENT DATE: 20160722
